FAERS Safety Report 22306769 (Version 1)
Quarter: 2023Q2

REPORT INFORMATION
  Report Type: Other
  Country: AU (occurrence: AU)
  Receive Date: 20230511
  Receipt Date: 20230511
  Transmission Date: 20230722
  Serious: Yes (Life-Threatening, Hospitalization, Other)
  Sender: FDA-Public Use
  Company Number: AU-DEXPHARM-20231165

PATIENT
  Age: 73 Year
  Sex: Male

DRUGS (8)
  1. DEXAMETHASONE [Interacting]
     Active Substance: DEXAMETHASONE
  2. CYCLOPHOSPHAMIDE [Interacting]
     Active Substance: CYCLOPHOSPHAMIDE
     Indication: Burkitt^s lymphoma
  3. CYTARABINE [Interacting]
     Active Substance: CYTARABINE
     Indication: Burkitt^s lymphoma
  4. DOXORUBICIN [Interacting]
     Active Substance: DOXORUBICIN
     Indication: Burkitt^s lymphoma
  5. METHOTREXATE [Interacting]
     Active Substance: METHOTREXATE
     Indication: Burkitt^s lymphoma
  6. METHYLPREDNISOLONE [Interacting]
     Active Substance: METHYLPREDNISOLONE
     Indication: Burkitt^s lymphoma
  7. VINCRISTINE [Interacting]
     Active Substance: VINCRISTINE
     Indication: Burkitt^s lymphoma
  8. LEUCOVORIN [Interacting]
     Active Substance: LEUCOVORIN
     Indication: Burkitt^s lymphoma

REACTIONS (3)
  - Neutropenic sepsis [Recovered/Resolved]
  - Infection [Recovered/Resolved]
  - Drug interaction [Recovered/Resolved]
